FAERS Safety Report 21515822 (Version 2)
Quarter: 2022Q4

REPORT INFORMATION
  Report Type: Spontaneous
  Country: US (occurrence: US)
  Receive Date: 20221027
  Receipt Date: 20221128
  Transmission Date: 20230112
  Serious: No
  Sender: FDA-Public Use
  Company Number: US-JNJFOC-20221049081

PATIENT
  Sex: Female

DRUGS (3)
  1. UPTRAVI [Suspect]
     Active Substance: SELEXIPAG
     Indication: Pulmonary hypertension
     Route: 048
     Dates: start: 20210116
  2. SILDENAFIL [Concomitant]
     Active Substance: SILDENAFIL
     Dates: start: 2010
  3. PREDNISONE [Concomitant]
     Active Substance: PREDNISONE
     Dates: start: 2000

REACTIONS (4)
  - Illness [Unknown]
  - Diarrhoea [Unknown]
  - Headache [Unknown]
  - Pain [Unknown]
